FAERS Safety Report 15146431 (Version 1)
Quarter: 2018Q3

REPORT INFORMATION
  Report Type: Spontaneous
  Country: ES (occurrence: ES)
  Receive Date: 20180715
  Receipt Date: 20180715
  Transmission Date: 20181010
  Serious: Yes (Hospitalization)
  Sender: FDA-Public Use
  Company Number: PHHY2018ES046626

PATIENT
  Age: 76 Year
  Sex: Female

DRUGS (1)
  1. AMOXICILLINA E ACIDO CLAVULANICO SANDOZ [Suspect]
     Active Substance: AMOXICILLIN\CLAVULANATE POTASSIUM
     Indication: URINARY TRACT INFECTION
     Route: 048

REACTIONS (2)
  - Epilepsy [Unknown]
  - Aphasia [Unknown]

NARRATIVE: CASE EVENT DATE: 20180413
